APPROVED DRUG PRODUCT: ZANTAC 75
Active Ingredient: RANITIDINE HYDROCHLORIDE
Strength: EQ 75MG BASE **Federal Register determination that product was not discontinued or withdrawn for safety or effectiveness reasons**
Dosage Form/Route: TABLET, EFFERVESCENT;ORAL
Application: N020745 | Product #001
Applicant: CHATTEM INC DBA SANOFI CONSUMER HEALTHCARE
Approved: Feb 26, 1998 | RLD: Yes | RS: No | Type: DISCN